FAERS Safety Report 20440282 (Version 1)
Quarter: 2022Q1

REPORT INFORMATION
  Report Type: Spontaneous
  Country: US (occurrence: None)
  Receive Date: 20220207
  Receipt Date: 20220207
  Transmission Date: 20220423
  Serious: No
  Sender: FDA-Public Use
  Company Number: None

PATIENT
  Age: 72 Year
  Sex: Male

DRUGS (1)
  1. FIRMAGON [Suspect]
     Active Substance: DEGARELIX ACETATE
     Indication: Prostate cancer
     Dosage: INJECT 80 MG SUBCUTANEOUSLY EVERY 4 WEEKS AS DIRECTED.     ?
     Route: 058
     Dates: start: 202001

REACTIONS (1)
  - Myocardial infarction [None]
